FAERS Safety Report 9222473 (Version 1)
Quarter: 2013Q2

REPORT INFORMATION
  Report Type: Spontaneous
  Country: ES (occurrence: ES)
  Receive Date: 20130410
  Receipt Date: 20130410
  Transmission Date: 20140414
  Serious: Yes (Death, Other)
  Sender: FDA-Public Use
  Company Number: ES-CELGENEUS-144-21880-13040014

PATIENT
  Sex: 0

DRUGS (5)
  1. REVLIMID [Suspect]
     Indication: PLASMA CELL MYELOMA
     Route: 048
  2. REVLIMID [Suspect]
     Route: 048
  3. REVLIMID [Suspect]
     Route: 048
  4. REVLIMID [Suspect]
     Route: 048
  5. DEXAMETHASONE [Suspect]
     Indication: PLASMA CELL MYELOMA
     Dosage: 20 MILLIGRAM
     Route: 065

REACTIONS (11)
  - Neoplasm malignant [Fatal]
  - Plasma cell myeloma [Fatal]
  - Cardiac amyloidosis [Fatal]
  - Renal failure chronic [Fatal]
  - Sepsis [Fatal]
  - Myocardial infarction [Fatal]
  - Cardiac failure congestive [Fatal]
  - Pulmonary embolism [Unknown]
  - Bone marrow toxicity [Unknown]
  - Neuropathy peripheral [Unknown]
  - Haematotoxicity [Unknown]
